FAERS Safety Report 25968896 (Version 1)
Quarter: 2025Q4

REPORT INFORMATION
  Report Type: Spontaneous
  Country: US (occurrence: US)
  Receive Date: 20251028
  Receipt Date: 20251028
  Transmission Date: 20260117
  Serious: No
  Sender: TEVA
  Company Number: US-TEVA-VS-3381315

PATIENT
  Age: 33 Year

DRUGS (2)
  1. AJOVY [Suspect]
     Active Substance: FREMANEZUMAB-VFRM
     Indication: Product used for unknown indication
     Route: 065
  2. AJOVY [Suspect]
     Active Substance: FREMANEZUMAB-VFRM

REACTIONS (5)
  - Ear discomfort [Unknown]
  - Accidental exposure to product [Unknown]
  - Ocular discomfort [Unknown]
  - Wrong technique in device usage process [Unknown]
  - Headache [Unknown]

NARRATIVE: CASE EVENT DATE: 20250907
